FAERS Safety Report 19648296 (Version 3)
Quarter: 2021Q3

REPORT INFORMATION
  Report Type: Report from Study
  Country: CA (occurrence: CA)
  Receive Date: 20210802
  Receipt Date: 20210929
  Transmission Date: 20211014
  Serious: Yes (Other)
  Sender: FDA-Public Use
  Company Number: CA-OTSUKA-2021_026374

PATIENT
  Sex: Female

DRUGS (2)
  1. CEDAZURIDINE AND DECITABINE [Suspect]
     Active Substance: CEDAZURIDINE\DECITABINE
     Indication: MYELODYSPLASTIC SYNDROME
     Dosage: (35 MG DECITABINE AND 100 MG CEDAZURIDINE), QD (5 DAYS) PER 28 DAYS CYCLE
     Route: 065
     Dates: start: 20210607
  2. CEDAZURIDINE AND DECITABINE [Suspect]
     Active Substance: CEDAZURIDINE\DECITABINE
     Dosage: (35 MG DECITABINE AND 100 MG CEDAZURIDINE), QD (4 DAYS) PER 28 DAYS CYCLE
     Route: 065

REACTIONS (7)
  - Pollakiuria [Unknown]
  - Product use issue [Unknown]
  - Renal disorder [Unknown]
  - Sleep disorder [Unknown]
  - Fatigue [Unknown]
  - Blood test abnormal [Unknown]
  - Neutrophil count abnormal [Unknown]

NARRATIVE: CASE EVENT DATE: 2021
